FAERS Safety Report 7006098-9 (Version None)
Quarter: 2010Q3

REPORT INFORMATION
  Report Type: 
  Country: None (occurrence: None)
  Receive Date: 20100921
  Receipt Date: 20100909
  Transmission Date: 20110219
  Serious: Yes (Hospitalization)
  Sender: FDA-Public Use
  Company Number: JP-PFIZER INC-2010106671

PATIENT
  Sex: Male

DRUGS (7)
  1. ZYVOX [Suspect]
     Dosage: 1200 MG, 1X/DAY
     Route: 041
     Dates: start: 20100820, end: 20100823
  2. ZYVOX [Suspect]
     Dosage: 1200 MG, 1X/DAY
     Route: 041
     Dates: start: 20100826, end: 20100831
  3. FINIBAX [Suspect]
     Dosage: UNK
     Route: 041
     Dates: start: 20100730, end: 20100819
  4. MEROPEN [Concomitant]
     Dosage: UNK
     Route: 041
     Dates: start: 20100721, end: 20100729
  5. VANCOMYCIN [Concomitant]
     Dosage: UNK
     Route: 041
     Dates: start: 20100810, end: 20100819
  6. EXCEGRAN [Concomitant]
     Route: 048
  7. ALLELOCK [Concomitant]
     Route: 048

REACTIONS (1)
  - ORAL MUCOSA EROSION [None]
